FAERS Safety Report 10912680 (Version 4)
Quarter: 2015Q2

REPORT INFORMATION
  Report Type: Spontaneous
  Country: US (occurrence: US)
  Receive Date: 20150313
  Receipt Date: 20150422
  Transmission Date: 20150821
  Serious: Yes (Hospitalization, Other)
  Sender: FDA-Public Use
  Company Number: US-UNITED THERAPEUTICS-UNT-2015-001295

PATIENT
  Age: 66 Year
  Sex: Male
  Weight: 91.16 kg

DRUGS (7)
  1. WARFARIN [Concomitant]
     Active Substance: WARFARIN
     Indication: PRODUCT USED FOR UNKNOWN INDICATION
  2. TYVASO [Suspect]
     Active Substance: TREPROSTINIL
     Dosage: 18-54 MICROGRAMS, QID
     Dates: start: 20150130
  3. TYVASO [Suspect]
     Active Substance: TREPROSTINIL
     Dosage: UNK
     Dates: start: 20150316
  4. ASPIRIN                            /00002701/ [Concomitant]
     Active Substance: ASPIRIN
     Indication: PRODUCT USED FOR UNKNOWN INDICATION
  5. TYVASO [Suspect]
     Active Substance: TREPROSTINIL
     Indication: PULMONARY ARTERIAL HYPERTENSION
     Dosage: 18-54 MICROGRAMS, QID
     Dates: start: 20150130
  6. TYVASO [Suspect]
     Active Substance: TREPROSTINIL
     Dosage: 18-54 MICROGRAMS, QID
     Dates: start: 20150130, end: 20150303
  7. SILDENAFIL. [Concomitant]
     Active Substance: SILDENAFIL
     Indication: PRODUCT USED FOR UNKNOWN INDICATION

REACTIONS (14)
  - Oropharyngeal pain [Unknown]
  - Drug dose omission [Unknown]
  - Nasal congestion [Unknown]
  - Chest discomfort [Recovered/Resolved]
  - Cough [Not Recovered/Not Resolved]
  - Lung disorder [Unknown]
  - Treatment noncompliance [Unknown]
  - Pneumonia [Unknown]
  - Condition aggravated [Unknown]
  - Dyspnoea [Unknown]
  - Throat irritation [Unknown]
  - Pulmonary pain [Unknown]
  - Pulmonary arterial hypertension [Unknown]
  - Therapy cessation [Unknown]

NARRATIVE: CASE EVENT DATE: 201501
